FAERS Safety Report 6816963-0 (Version None)
Quarter: 2010Q3

REPORT INFORMATION
  Report Type: 
  Country: None (occurrence: None)
  Receive Date: 20100706
  Receipt Date: 20100622
  Transmission Date: 20110219
  Serious: Yes (Hospitalization)
  Sender: FDA-Public Use
  Company Number: PHHY2010GB06959

PATIENT
  Age: 34 Year
  Sex: Female

DRUGS (11)
  1. DICLOFENAC POTASSIUM [Suspect]
     Indication: DYSMENORRHOEA
     Dosage: 50 MG, TID
     Dates: start: 20090123, end: 20090515
  2. VOLTAREN [Suspect]
     Dosage: 50 MG, TID
     Dates: start: 20080620
  3. DICLOFLEX [Suspect]
     Dosage: 50 MG, TID
     Route: 048
  4. LANSOPRAZOLE [Concomitant]
     Dosage: 30 MG, UNK
     Route: 048
  5. ACETAMINOPHEN [Concomitant]
     Indication: DYSMENORRHOEA
     Dosage: UNK
     Dates: start: 20070101, end: 20080501
  6. VENTOLIN [Concomitant]
     Indication: ASTHMA
     Dosage: 100 UG, PRN
  7. MULTI-VITAMINS [Concomitant]
     Dosage: UNK
     Dates: start: 19970101
  8. SERETIDE EVOHALER [Concomitant]
     Indication: ASTHMA
     Dosage: 250 UG, BID
     Dates: start: 20080101
  9. CEPHALEXIN [Concomitant]
     Dosage: 500MG NOCTE
  10. TRAMADOL HCL [Concomitant]
  11. ACETYLSALICYLIC ACID [Concomitant]
     Dosage: UNK
     Dates: start: 20090516, end: 20090517

REACTIONS (17)
  - ARTHRALGIA [None]
  - BEDRIDDEN [None]
  - DEHYDRATION [None]
  - DEPRESSION [None]
  - DIARRHOEA [None]
  - FOREIGN BODY SENSATION IN EYES [None]
  - JOINT SWELLING [None]
  - MUSCLE ATROPHY [None]
  - OCULAR HYPERAEMIA [None]
  - OEDEMA PERIPHERAL [None]
  - RENAL FAILURE ACUTE [None]
  - SEPSIS [None]
  - SKIN HYPERPIGMENTATION [None]
  - SWELLING FACE [None]
  - URINARY TRACT INFECTION [None]
  - VISUAL IMPAIRMENT [None]
  - WEIGHT DECREASED [None]
